FAERS Safety Report 7811627-9 (Version None)
Quarter: 2011Q4

REPORT INFORMATION
  Report Type: 
  Country: None (occurrence: None)
  Receive Date: 20111013
  Receipt Date: 20111006
  Transmission Date: 20120403
  Serious: Yes (Other)
  Sender: FDA-Public Use
  Company Number: US-US-EMD SERONO, INC.-430015K06USA

PATIENT
  Sex: Female
  Weight: 108.9 kg

DRUGS (1)
  1. NOVANTRONE [Suspect]
     Indication: MULTIPLE SCLEROSIS
     Route: 065
     Dates: end: 20031119

REACTIONS (2)
  - PERICARDIAL EFFUSION [None]
  - CARDIOMYOPATHY [None]
